FAERS Safety Report 6359966-5 (Version None)
Quarter: 2009Q3

REPORT INFORMATION
  Report Type: 
  Country: None (occurrence: None)
  Receive Date: 20090917
  Receipt Date: 20090914
  Transmission Date: 20100115
  Serious: Yes (Other)
  Sender: FDA-Public Use
  Company Number: TR-ROXANE LABORATORIES, INC.-2009-RO-00934RO

PATIENT
  Age: 9 Year
  Sex: Male

DRUGS (6)
  1. PREDNISONE [Suspect]
     Indication: HODGKIN'S DISEASE
  2. CYCLOPHOSPHAMIDE [Suspect]
     Indication: HODGKIN'S DISEASE
  3. MESNA [Suspect]
     Indication: HODGKIN'S DISEASE
  4. MESNA [Suspect]
     Route: 042
  5. VINCRISTINE [Suspect]
     Indication: HODGKIN'S DISEASE
  6. PROCARBAZINE [Suspect]
     Indication: HODGKIN'S DISEASE

REACTIONS (2)
  - CYSTITIS HAEMORRHAGIC [None]
  - PYREXIA [None]
